FAERS Safety Report 18746168 (Version 2)
Quarter: 2021Q2

REPORT INFORMATION
  Report Type: Spontaneous
  Country: GB (occurrence: GB)
  Receive Date: 20210115
  Receipt Date: 20210524
  Transmission Date: 20210717
  Serious: Yes (Other)
  Sender: FDA-Public Use
  Company Number: GB-PFIZER INC-2021009647

PATIENT
  Age: 35 Year
  Sex: Male

DRUGS (3)
  1. BLEOMYCIN SULFATE [Suspect]
     Active Substance: BLEOMYCIN SULFATE
     Indication: TESTICULAR MALIGNANT TERATOMA
     Dosage: 30 MG, CYCLIC (21 DAY CYCLES, DAYS 2, 9, AND 16)
     Route: 042
     Dates: start: 198812
  2. ETOPOSIDE. [Suspect]
     Active Substance: ETOPOSIDE
     Indication: TESTICULAR MALIGNANT TERATOMA
     Dosage: 200 MG, CYCLIC (21 DAY CYCLES, DAY 1?3)
     Route: 042
     Dates: start: 198812
  3. CISPLATIN. [Suspect]
     Active Substance: CISPLATIN
     Indication: TESTICULAR MALIGNANT TERATOMA
     Dosage: 40 MG, CYCLIC (21 DAY CYCLES, DAY 1?5)
     Route: 042
     Dates: start: 198812

REACTIONS (1)
  - Peripheral artery thrombosis [Unknown]
